FAERS Safety Report 8997174 (Version 1)
Quarter: 2013Q1

REPORT INFORMATION
  Report Type: Spontaneous
  Country: US (occurrence: None)
  Receive Date: 20130102
  Receipt Date: 20130102
  Transmission Date: 20140127
  Serious: Yes (Hospitalization)
  Sender: FDA-Public Use
  Company Number: None

PATIENT
  Age: 65 Year
  Sex: Male
  Weight: 111.5 kg

DRUGS (15)
  1. OFATUMUMAB [Suspect]
     Indication: CHRONIC LYMPHOCYTIC LEUKAEMIA
     Route: 042
     Dates: start: 20121126
  2. ACYCLOVIR [Concomitant]
  3. AMLODIPINE [Concomitant]
  4. ATENOLOL [Concomitant]
  5. BENADRYL [Concomitant]
  6. FISH OIL [Concomitant]
  7. KETOCONAZOLE [Concomitant]
  8. MEPRON [Concomitant]
  9. MVI [Concomitant]
  10. PRAVASTATIN [Concomitant]
  11. PREDNISONE [Concomitant]
  12. TYLENOL [Concomitant]
  13. VITAMIN D3 [Concomitant]
  14. VORICONAZOLE [Concomitant]
  15. ZYRTEC [Concomitant]

REACTIONS (6)
  - Fatigue [None]
  - Chest pain [None]
  - Dizziness [None]
  - Atelectasis [None]
  - Pneumonia [None]
  - Malaise [None]
